FAERS Safety Report 10519412 (Version 1)
Quarter: 2014Q4

REPORT INFORMATION
  Report Type: Spontaneous
  Country: US (occurrence: None)
  Receive Date: 20141014
  Receipt Date: 20141014
  Transmission Date: 20150528
  Serious: Yes (Disabling, Other)
  Sender: FDA-Public Use
  Company Number: None

PATIENT
  Age: 59 Year
  Sex: Male
  Weight: 81.19 kg

DRUGS (1)
  1. TOPIRAMATE. [Suspect]
     Active Substance: TOPIRAMATE
     Indication: MIGRAINE
     Route: 048
     Dates: start: 20111230, end: 20140730

REACTIONS (8)
  - Faecal incontinence [None]
  - Gastritis [None]
  - Bedridden [None]
  - Barrett^s oesophagus [None]
  - Unevaluable event [None]
  - Diarrhoea [None]
  - Duodenitis [None]
  - Abdominal pain [None]
